FAERS Safety Report 22937998 (Version 3)
Quarter: 2023Q4

REPORT INFORMATION
  Report Type: Spontaneous
  Country: US (occurrence: US)
  Receive Date: 20230913
  Receipt Date: 20231025
  Transmission Date: 20240110
  Serious: No
  Sender: FDA-Public Use
  Company Number: US-BRISTOL-MYERS SQUIBB COMPANY-2023-127970

PATIENT
  Age: 80 Year
  Sex: Female
  Weight: 51.71 kg

DRUGS (1)
  1. REVLIMID [Suspect]
     Active Substance: LENALIDOMIDE
     Indication: Plasma cell myeloma
     Dosage: DOSE : 15 MG;     FREQ : ONCE EVERY OTHER DAY FOR 3 WEEKS AND 1 WEEK OFF
     Route: 048
     Dates: start: 20230829

REACTIONS (4)
  - Dysphagia [Unknown]
  - Rash [Unknown]
  - Tremor [Recovering/Resolving]
  - Blood glucose decreased [Recovering/Resolving]
